FAERS Safety Report 9646010 (Version 1)
Quarter: 2013Q4

REPORT INFORMATION
  Report Type: Spontaneous
  Country: US (occurrence: US)
  Receive Date: 20131025
  Receipt Date: 20131025
  Transmission Date: 20140711
  Serious: Yes (Hospitalization, Other)
  Sender: FDA-Public Use
  Company Number: US-BRISTOL-MYERS SQUIBB COMPANY-19602143

PATIENT
  Age: 75 Year
  Sex: Male

DRUGS (2)
  1. ELIQUIS [Suspect]
     Dates: start: 20121001
  2. WARFARIN SODIUM [Suspect]
     Dates: end: 20121001

REACTIONS (3)
  - Arthralgia [Unknown]
  - Oral disorder [Unknown]
  - Gastrointestinal haemorrhage [Unknown]
